FAERS Safety Report 23711844 (Version 1)
Quarter: 2024Q2

REPORT INFORMATION
  Report Type: Spontaneous
  Country: RU (occurrence: RU)
  Receive Date: 20240405
  Receipt Date: 20240405
  Transmission Date: 20240716
  Serious: Yes (Other)
  Sender: FDA-Public Use
  Company Number: None

PATIENT
  Age: 83 Year
  Sex: Female

DRUGS (12)
  1. ULTRAVIST [Suspect]
     Active Substance: IOPROMIDE
     Indication: Angiocardiogram
     Dosage: 200 ML, ONCE
     Route: 042
     Dates: start: 20240326, end: 20240326
  2. LIDOCAINE [Concomitant]
     Active Substance: LIDOCAINE
     Indication: Local anaesthesia
     Dosage: 4 ML, ONCE
     Route: 023
     Dates: start: 20240326, end: 20240326
  3. ASPIRIN\CLOPIDOGREL BISULFATE [Concomitant]
     Active Substance: ASPIRIN\CLOPIDOGREL BISULFATE
  4. ASPIRIN [Concomitant]
     Active Substance: ASPIRIN
     Indication: Coronary artery disease
     Dosage: 1 DF, QD 100 MG
     Route: 048
     Dates: start: 20240321, end: 20240327
  5. CLOPIDOGREL [Concomitant]
     Active Substance: CLOPIDOGREL BISULFATE
     Indication: Coronary artery disease
     Dosage: 75 MG
     Route: 048
     Dates: start: 20240321, end: 20240327
  6. ENOXAPARIN [Concomitant]
     Active Substance: ENOXAPARIN
     Indication: Atrial fibrillation
     Dosage: 10000 ANTI-XA IU/ML 0.4 ML
     Route: 058
     Dates: start: 20240321, end: 20240326
  7. BISOPROLOL [Concomitant]
     Active Substance: BISOPROLOL\BISOPROLOL FUMARATE
     Indication: Hypertension
     Dosage: 10 MG 1/4 TABLET
     Route: 048
     Dates: start: 20240321, end: 20240327
  8. BISOPROLOL [Concomitant]
     Active Substance: BISOPROLOL\BISOPROLOL FUMARATE
     Indication: Cardiac disorder
  9. AMLODIPINE [Concomitant]
     Active Substance: AMLODIPINE BESYLATE
     Indication: Hypertension
     Dosage: 10 MG, QD 1/2 TABLET
     Route: 048
     Dates: start: 20240321, end: 20240326
  10. LOSARTAN [Concomitant]
     Active Substance: LOSARTAN
     Indication: Hypertension
     Dosage: 1 DF, QD
     Route: 048
     Dates: start: 20240321, end: 20240327
  11. SPIRONOLACTONE [Concomitant]
     Active Substance: SPIRONOLACTONE
     Indication: Cardiac failure chronic
     Dosage: 1 DF, QD 25 MG
     Route: 048
     Dates: start: 20240321, end: 20240327
  12. ATORVASTATIN [Concomitant]
     Active Substance: ATORVASTATIN
     Indication: Cardiac failure chronic
     Dosage: 2 DF, QD
     Route: 048
     Dates: start: 20240321, end: 20240327

REACTIONS (2)
  - Hyperthermia [Recovered/Resolved]
  - Tremor [Recovered/Resolved]

NARRATIVE: CASE EVENT DATE: 20240326
